FAERS Safety Report 19568695 (Version 1)
Quarter: 2021Q3

REPORT INFORMATION
  Report Type: Spontaneous
  Country: JP (occurrence: JP)
  Receive Date: 20210715
  Receipt Date: 20210715
  Transmission Date: 20211014
  Serious: Yes (Other)
  Sender: FDA-Public Use
  Company Number: JP-PFIZER INC-2021823161

PATIENT
  Age: 7 Decade
  Sex: Male

DRUGS (2)
  1. LYRICA [Suspect]
     Active Substance: PREGABALIN
     Dosage: 50 MG, 2X/DAY
     Route: 048
  2. LYRICA [Suspect]
     Active Substance: PREGABALIN
     Indication: NEURALGIA
     Dosage: 25 MG, 2X/DAY
     Route: 048

REACTIONS (4)
  - Seizure [Recovered/Resolved]
  - Hypoaesthesia [Recovered/Resolved]
  - Toxicity to various agents [Recovered/Resolved]
  - Tremor [Recovered/Resolved]
